FAERS Safety Report 9374540 (Version 1)
Quarter: 2013Q2

REPORT INFORMATION
  Report Type: Spontaneous
  Country: JP (occurrence: None)
  Receive Date: 20130624
  Receipt Date: 20130624
  Transmission Date: 20140414
  Serious: Yes (Other)
  Sender: FDA-Public Use
  Company Number: B0901061A

PATIENT
  Age: 41 Year
  Sex: Male

DRUGS (5)
  1. COMBIVIR [Suspect]
     Indication: ACQUIRED IMMUNODEFICIENCY SYNDROME
  2. EFAVIRENZ [Suspect]
     Indication: DRUG THERAPY
  3. TENOFOVIR DISOPROXIL FUMARATE [Suspect]
     Indication: ACQUIRED IMMUNODEFICIENCY SYNDROME
  4. EMTRICITABINE [Suspect]
     Indication: ACQUIRED IMMUNODEFICIENCY SYNDROME
  5. LOPINAVIR+ RITONAVIR [Suspect]
     Indication: ACQUIRED IMMUNODEFICIENCY SYNDROME

REACTIONS (6)
  - Basedow^s disease [None]
  - Blood HIV RNA increased [None]
  - Tremor [None]
  - Diplopia [None]
  - Amnesia [None]
  - Hypercholesterolaemia [None]
